FAERS Safety Report 4490383-9 (Version None)
Quarter: 2004Q4

REPORT INFORMATION
  Report Type: 
  Country: None (occurrence: None)
  Receive Date: 20041028
  Receipt Date: 20041014
  Transmission Date: 20050328
  Serious: Yes (Hospitalization)
  Sender: FDA-Public Use
  Company Number: 209423

PATIENT
  Age: 35 Year
  Sex: Male
  Weight: 58 kg

DRUGS (2)
  1. RITUXAN [Suspect]
     Indication: DIFFUSE LARGE B-CELL LYMPHOMA
     Dosage: SEE IMAGE
     Route: 042
     Dates: start: 20040906, end: 20040906
  2. RITUXAN [Suspect]
     Indication: DIFFUSE LARGE B-CELL LYMPHOMA
     Dosage: SEE IMAGE
     Route: 042
     Dates: start: 20040929, end: 20040929

REACTIONS (9)
  - CONJUNCTIVAL OEDEMA [None]
  - EYELID DISORDER [None]
  - FACIAL NERVE DISORDER [None]
  - FACIAL PALSY [None]
  - MACULAR REFLEX ABNORMAL [None]
  - OPTIC DISCS BLURRED [None]
  - PARAESTHESIA [None]
  - SPEECH DISORDER [None]
  - VISUAL DISTURBANCE [None]
